FAERS Safety Report 7203625-3 (Version None)
Quarter: 2010Q4

REPORT INFORMATION
  Report Type: 
  Country: None (occurrence: None)
  Receive Date: 20101230
  Receipt Date: 20101229
  Transmission Date: 20110411
  Serious: Yes (Other)
  Sender: FDA-Public Use
  Company Number: US-PFIZER INC-2010177957

PATIENT
  Sex: Female

DRUGS (7)
  1. PROTONIX [Suspect]
     Dosage: 40 MG, UNK
     Route: 048
  2. DILTIAZEM [Concomitant]
     Indication: HYPERTENSION
     Dosage: UNK
  3. DILTIAZEM [Concomitant]
     Indication: CARDIAC FAILURE CONGESTIVE
  4. HYDRALAZINE [Concomitant]
     Indication: HYPERTENSION
     Dosage: UNK
  5. HYDRALAZINE [Concomitant]
     Indication: CARDIAC FAILURE CONGESTIVE
  6. METOPROLOL [Concomitant]
     Indication: HYPERTENSION
     Dosage: UNK
  7. METOPROLOL [Concomitant]
     Indication: CARDIAC FAILURE CONGESTIVE

REACTIONS (4)
  - ANORECTAL OPERATION [None]
  - ILEUS [None]
  - MEDICATION RESIDUE [None]
  - PROTEIN TOTAL DECREASED [None]
